FAERS Safety Report 6836523-5 (Version None)
Quarter: 2010Q3

REPORT INFORMATION
  Report Type: 
  Country: None (occurrence: None)
  Receive Date: 20100708
  Receipt Date: 20100624
  Transmission Date: 20110219
  Serious: Yes (Other)
  Sender: FDA-Public Use
  Company Number: RB-11614-2010

PATIENT
  Sex: Female

DRUGS (2)
  1. SUBOXONE [Suspect]
     Indication: DRUG DEPENDENCE
     Dosage: 8 MG BID, ORAL  16 MG, SUBLINGUAL
     Route: 048
     Dates: start: 20100612, end: 20100616
  2. SUBOXONE [Suspect]
     Indication: DRUG DEPENDENCE
     Dosage: 8 MG BID, ORAL  16 MG, SUBLINGUAL
     Route: 048
     Dates: start: 20100617

REACTIONS (8)
  - BACK PAIN [None]
  - CONVULSION [None]
  - DYSARTHRIA [None]
  - ELECTROLYTE IMBALANCE [None]
  - EMOTIONAL DISORDER [None]
  - LOSS OF CONSCIOUSNESS [None]
  - SOMNOLENCE [None]
  - WITHDRAWAL SYNDROME [None]
